FAERS Safety Report 5650532-3 (Version None)
Quarter: 2008Q1

REPORT INFORMATION
  Report Type: 
  Country: None (occurrence: None)
  Receive Date: 20080305
  Receipt Date: 20080227
  Transmission Date: 20080703
  Serious: Yes (Hospitalization)
  Sender: FDA-Public Use
  Company Number: PHBS2007JP18013

PATIENT
  Age: 77 Year
  Sex: Male
  Weight: 48 kg

DRUGS (8)
  1. COMTAN [Suspect]
     Indication: PARKINSON'S DISEASE
     Dosage: 100 MG, TID
     Route: 048
     Dates: start: 20070810, end: 20070925
  2. CARBIDOPA AND LEVODOPA [Suspect]
     Dosage: 100 MG, TID
     Route: 048
     Dates: start: 20050825
  3. CABERGOLINE [Suspect]
     Dosage: 1 MG, QD
     Route: 048
     Dates: start: 20060228
  4. LENDORMIN [Concomitant]
     Dosage: 0.25 MG/DAY
     Route: 048
     Dates: start: 20051007
  5. WYPAX [Concomitant]
     Dosage: 1.5 MG/DAY
     Route: 048
     Dates: start: 20051208
  6. FAMOTIDINE [Concomitant]
     Dosage: 40 MG/DAY
     Route: 048
     Dates: start: 20051213
  7. GASMOTIN [Concomitant]
     Dosage: 15 MG/DAY
     Route: 048
     Dates: start: 20051213
  8. MAGLAX [Concomitant]
     Dosage: 1980 MG/DAY
     Route: 048
     Dates: start: 20061013

REACTIONS (21)
  - ALANINE AMINOTRANSFERASE INCREASED [None]
  - ASPARTATE AMINOTRANSFERASE INCREASED [None]
  - BLOOD CREATINE PHOSPHOKINASE INCREASED [None]
  - BLOOD UREA INCREASED [None]
  - C-REACTIVE PROTEIN INCREASED [None]
  - DYSARTHRIA [None]
  - DYSPHAGIA [None]
  - GASTROINTESTINAL TUBE INSERTION [None]
  - HAEMATOCRIT DECREASED [None]
  - HAEMOGLOBIN DECREASED [None]
  - HYPOREFLEXIA [None]
  - MUSCLE RIGIDITY [None]
  - NAUSEA [None]
  - NEUROLEPTIC MALIGNANT SYNDROME [None]
  - NEUTROPHIL COUNT INCREASED [None]
  - PARKINSON'S DISEASE [None]
  - PNEUMONIA ASPIRATION [None]
  - PYREXIA [None]
  - RED BLOOD CELL COUNT DECREASED [None]
  - VOMITING [None]
  - WHITE BLOOD CELL COUNT INCREASED [None]
